FAERS Safety Report 5226158-2 (Version None)
Quarter: 2007Q1

REPORT INFORMATION
  Report Type: 
  Country: None (occurrence: None)
  Receive Date: 20070201
  Receipt Date: 20070125
  Transmission Date: 20070707
  Serious: Yes (Other)
  Sender: FDA-Public Use
  Company Number: US-JNJFOC-20070106590

PATIENT
  Sex: Female

DRUGS (10)
  1. INFLIXIMAB [Suspect]
     Indication: RHEUMATOID ARTHRITIS
     Route: 042
  2. AMITRIPTYLINE HCL [Concomitant]
  3. LISINOPRIL [Concomitant]
  4. VITAMIN CAP [Concomitant]
  5. PREDNISONE [Concomitant]
  6. TOPROL-XL [Concomitant]
  7. NEXIUM [Concomitant]
  8. LIPITOR [Concomitant]
  9. CALCIUM [Concomitant]
  10. FUROSEMIDE [Concomitant]

REACTIONS (1)
  - OVARIAN CANCER [None]
